FAERS Safety Report 11292245 (Version 2)
Quarter: 2015Q4

REPORT INFORMATION
  Report Type: Spontaneous
  Country: IS (occurrence: IS)
  Receive Date: 20150722
  Receipt Date: 20151105
  Transmission Date: 20160304
  Serious: Yes (Hospitalization)
  Sender: FDA-Public Use
  Company Number: IS-TEVA-579605ISR

PATIENT
  Age: 71 Year
  Sex: Male

DRUGS (21)
  1. GLUCOPHAGE [Concomitant]
     Active Substance: METFORMIN HYDROCHLORIDE
     Dosage: 500 MILLIGRAM DAILY;
     Route: 048
  2. XARELTO [Concomitant]
     Active Substance: RIVAROXABAN
     Dosage: 20 MILLIGRAM DAILY;
     Route: 048
  3. ZARATOR [Concomitant]
     Active Substance: ATORVASTATIN CALCIUM
     Dosage: 40 MILLIGRAM DAILY; HALF TABLET TWICE A DAY
     Route: 048
  4. HJARTAMAGNYL [Concomitant]
     Dosage: 1 DOSAGE FORMS DAILY;
     Route: 048
  5. OXYNORM [Concomitant]
     Active Substance: OXYCODONE HYDROCHLORIDE
     Dosage: HALF TABLET TWICE A DAY
     Route: 048
  6. IMOVANE [Concomitant]
     Active Substance: ZOPICLONE
     Dosage: 15 MILLIGRAM DAILY; HALF TABLET TWICE A DAY
     Route: 048
  7. ISOPHANE INSULIN [Concomitant]
     Active Substance: INSULIN NOS
     Dosage: HALF TABLET TWICE A DAY
     Route: 058
  8. OMEPRAZOL 20 [Concomitant]
     Active Substance: OMEPRAZOLE
     Dosage: 20 MILLIGRAM DAILY;
     Route: 048
  9. DUROFERON [Concomitant]
     Active Substance: FERROUS SULFATE\FERROUS SULFATE, DRIED
     Dosage: 200 MILLIGRAM DAILY;
     Route: 048
  10. DAREN [Concomitant]
     Dosage: 20 MILLIGRAM DAILY;
     Route: 048
  11. NITROGLYCERIN. [Concomitant]
     Active Substance: NITROGLYCERIN
     Dosage: .5 MILLIGRAM DAILY; HALF TABLET TWICE A DAY
     Route: 060
  12. TAFIL [Concomitant]
     Active Substance: ALPRAZOLAM
     Dosage: HALF TABLET TWICE A DAY
     Route: 048
  13. AMARYL 3MG [Concomitant]
     Dosage: 3 MILLIGRAM DAILY;
     Route: 048
  14. HUSK 500MG [Concomitant]
     Dosage: 500 MILLIGRAM DAILY;
     Route: 048
  15. ATENOLOL. [Concomitant]
     Active Substance: ATENOLOL
     Dosage: 100 MILLIGRAM DAILY;
     Route: 048
  16. DEXOMETHASONE [Concomitant]
     Dosage: 2 MILLIGRAM DAILY; HALF TABLET TWICE A DAY
     Route: 048
  17. CIPROFLOXACIN. [Concomitant]
     Active Substance: CIPROFLOXACIN
     Dosage: 1000 MILLIGRAM DAILY; HALF TABLET TWICE A DAY
     Route: 048
  18. FENTANYL RATIOPHARM 100MCG/H [Suspect]
     Active Substance: FENTANYL
     Indication: CANCER PAIN
     Dosage: 100 MICROGRAM DAILY;
     Route: 062
  19. GABAPENTIN. [Concomitant]
     Active Substance: GABAPENTIN
     Dosage: 300 MILLIGRAM DAILY; HALF TABLET TWICE A DAY
     Route: 048
  20. LORATADINE. [Concomitant]
     Active Substance: LORATADINE
     Dosage: 10 MILLIGRAM DAILY; HALF TABLET TWICE A DAY
     Route: 048
  21. ZOLADEX [Concomitant]
     Active Substance: GOSERELIN ACETATE
     Dosage: .0111 DOSAGE FORMS DAILY; HALF TABLET TWICE A DAY
     Route: 058

REACTIONS (3)
  - Application site pain [Recovered/Resolved]
  - Application site vesicles [Recovered/Resolved]
  - Application site hypersensitivity [Recovered/Resolved]

NARRATIVE: CASE EVENT DATE: 201507
